FAERS Safety Report 9107805 (Version 9)
Quarter: 2015Q2

REPORT INFORMATION
  Report Type: Spontaneous
  Country: US (occurrence: US)
  Receive Date: 20130221
  Receipt Date: 20150519
  Transmission Date: 20150821
  Serious: No
  Sender: FDA-Public Use
  Company Number: US-PFIZER INC-2013063556

PATIENT
  Age: 57 Year
  Sex: Male
  Weight: 88.44 kg

DRUGS (6)
  1. SUTENT [Suspect]
     Active Substance: SUNITINIB MALATE
     Indication: RENAL CELL CARCINOMA
     Dosage: 25 MG, CYCLIC (X 4WKS ON + 2 WEEKS OFF THEN REPEAT)
     Route: 048
     Dates: start: 20130211
  2. SUTENT [Suspect]
     Active Substance: SUNITINIB MALATE
     Dosage: 50 MG, UNK
     Route: 048
  3. SIMVASTATIN. [Concomitant]
     Active Substance: SIMVASTATIN
     Dosage: 20 MG, 1X/DAY
     Dates: end: 20130708
  4. VASOTEC [Concomitant]
     Active Substance: ENALAPRIL MALEATE
     Dosage: 20 MG, DAILY
  5. PRAVASTATIN [Concomitant]
     Active Substance: PRAVASTATIN\PRAVASTATIN SODIUM
     Dosage: 20 MG, DAILY
     Dates: start: 20130709
  6. PROZAC [Concomitant]
     Active Substance: FLUOXETINE HYDROCHLORIDE
     Dosage: 40 MG, DAILY

REACTIONS (11)
  - Stomatitis [Unknown]
  - Skin haemorrhage [Recovered/Resolved]
  - Weight fluctuation [Unknown]
  - Thyroid function test abnormal [Recovered/Resolved]
  - Oropharyngeal pain [Unknown]
  - Dysgeusia [Unknown]
  - Muscle twitching [Unknown]
  - Hair colour changes [Unknown]
  - Diarrhoea [Not Recovered/Not Resolved]
  - Animal scratch [Recovered/Resolved]
  - Increased appetite [Unknown]
